FAERS Safety Report 4447516-X (Version None)
Quarter: 2004Q3

REPORT INFORMATION
  Report Type: 
  Country: None (occurrence: None)
  Receive Date: 20040823
  Receipt Date: 20040602
  Transmission Date: 20050211
  Serious: No
  Sender: FDA-Public Use
  Company Number: PHEH2004US06011

PATIENT
  Age: 77 Year
  Sex: Female

DRUGS (6)
  1. ZELNORM [Suspect]
     Indication: IRRITABLE BOWEL SYNDROME
     Dosage: 6 MG, BID, ORAL
     Route: 048
     Dates: start: 20040425, end: 20040528
  2. BISMUTH SUBSALICYLATE IN OIL INJ [Suspect]
  3. LIPITOR [Concomitant]
  4. BEXTRA [Concomitant]
  5. HYZAAR [Concomitant]
  6. PREVACID [Concomitant]

REACTIONS (4)
  - ASTHENIA [None]
  - DIARRHOEA [None]
  - FAECES DISCOLOURED [None]
  - VIRAL INFECTION [None]
